FAERS Safety Report 6750083-9 (Version None)
Quarter: 2010Q2

REPORT INFORMATION
  Report Type: 
  Country: None (occurrence: None)
  Receive Date: 20100527
  Receipt Date: 20100527
  Transmission Date: 20101027
  Serious: Yes (Hospitalization)
  Sender: FDA-Public Use
  Company Number: None

PATIENT
  Age: 49 Year
  Sex: Female
  Weight: 77.56 kg

DRUGS (19)
  1. MYFORTIC [Suspect]
  2. PROGRAF [Concomitant]
  3. PREDNISONE [Concomitant]
  4. NYSTATIN ORAL SUSPENSION [Concomitant]
  5. AZITHROMYCIN [Concomitant]
  6. BENZONATATE [Suspect]
  7. TESSALON [Concomitant]
  8. NOVOLOG [Concomitant]
  9. EPOETIN ALPHA INJ [Concomitant]
  10. LYRICA [Concomitant]
  11. VITAMIN D [Concomitant]
  12. WELLBUTRIN XL [Concomitant]
  13. XALATAN AND ASOPT [Concomitant]
  14. PREMARIN [Concomitant]
  15. VITAMIN C [Concomitant]
  16. VITAMIN E [Concomitant]
  17. ACTONEL [Concomitant]
  18. ZOLPIDEM [Concomitant]
  19. AMBIEN [Concomitant]

REACTIONS (1)
  - DEVICE RELATED INFECTION [None]
